FAERS Safety Report 13459786 (Version 1)
Quarter: 2017Q2

REPORT INFORMATION
  Report Type: Spontaneous
  Country: US (occurrence: US)
  Receive Date: 20170420
  Receipt Date: 20170420
  Transmission Date: 20170830
  Serious: No
  Sender: FDA-Public Use
  Company Number: US-JNJFOC-20170414113

PATIENT
  Age: 24 Month
  Sex: Male
  Weight: 12.25 kg

DRUGS (2)
  1. CHILDRENS ZYRTEC [Suspect]
     Active Substance: CETIRIZINE HYDROCHLORIDE
     Indication: HYPERSENSITIVITY
     Dosage: WAS SUPPOSED TO GIVE THE CONSUMER 2.5ML OF THE PRODUCT, BUT ACCIDENTALLY GAVE HIM 10ML.
     Route: 048
     Dates: start: 20170411
  2. CHILDRENS ZYRTEC [Suspect]
     Active Substance: CETIRIZINE HYDROCHLORIDE
     Indication: SINUS CONGESTION
     Dosage: WAS SUPPOSED TO GIVE THE CONSUMER 2.5ML OF THE PRODUCT, BUT ACCIDENTALLY GAVE HIM 10ML.
     Route: 048
     Dates: start: 20170411

REACTIONS (2)
  - Product use in unapproved indication [Unknown]
  - Incorrect dose administered [Unknown]
